FAERS Safety Report 22987177 (Version 2)
Quarter: 2023Q4

REPORT INFORMATION
  Report Type: Report from Study
  Country: CN (occurrence: CN)
  Receive Date: 20230926
  Receipt Date: 20231003
  Transmission Date: 20240110
  Serious: Yes (Hospitalization)
  Sender: FDA-Public Use
  Company Number: CN-MIRATI-MT2023CT04884

PATIENT
  Age: 73 Year
  Sex: Male
  Weight: 50 kg

DRUGS (5)
  1. ADAGRASIB [Suspect]
     Active Substance: ADAGRASIB
     Indication: Non-small cell lung cancer
     Dosage: 600 MG, BID
     Route: 048
     Dates: start: 20230905
  2. ADAGRASIB [Suspect]
     Active Substance: ADAGRASIB
     Dosage: 600 MG, QD
     Route: 048
     Dates: end: 20230918
  3. Yunnan baiyao [Concomitant]
     Indication: Product used for unknown indication
     Dosage: 2 CAPSULES
     Route: 048
     Dates: start: 20230823, end: 20230903
  4. JOINT PAIN RELIEF [Concomitant]
     Indication: Product used for unknown indication
     Dosage: 1 UNK
     Route: 061
     Dates: start: 1990
  5. MONTMORILLONITE [Concomitant]
     Active Substance: MONTMORILLONITE
     Indication: Product used for unknown indication
     Dosage: 1 PACK
     Route: 048
     Dates: start: 20230915

REACTIONS (2)
  - Gastroenteritis [Recovered/Resolved]
  - Haemophagocytic lymphohistiocytosis [Not Recovered/Not Resolved]

NARRATIVE: CASE EVENT DATE: 20230909
